FAERS Safety Report 6295066-0 (Version None)
Quarter: 2009Q3

REPORT INFORMATION
  Report Type: 
  Country: None (occurrence: None)
  Receive Date: 20090803
  Receipt Date: 20090803
  Transmission Date: 20100115
  Serious: Yes (Other)
  Sender: FDA-Public Use
  Company Number: US-PFIZER INC-2009186851

PATIENT
  Sex: Female
  Weight: 47 kg

DRUGS (1)
  1. CORTEF [Suspect]
     Indication: ADDISON'S DISEASE
     Dosage: 60 MG, 2X/DAY
     Route: 048
     Dates: start: 19960101

REACTIONS (12)
  - ARTHROPATHY [None]
  - BLINDNESS [None]
  - BURNING SENSATION [None]
  - EYE IRRITATION [None]
  - HEADACHE [None]
  - HYPERSENSITIVITY [None]
  - JOINT SWELLING [None]
  - LACRIMATION INCREASED [None]
  - OCULAR HYPERAEMIA [None]
  - PAIN [None]
  - RASH MACULAR [None]
  - THYROID NEOPLASM [None]
